FAERS Safety Report 26180230 (Version 1)
Quarter: 2025Q4

REPORT INFORMATION
  Report Type: Spontaneous
  Country: US (occurrence: US)
  Receive Date: 20251219
  Receipt Date: 20251219
  Transmission Date: 20260118
  Serious: No
  Sender: VERTEX
  Company Number: US-VERTEX PHARMACEUTICALS-2025-021545

PATIENT
  Age: 75 Year

DRUGS (1)
  1. JOURNAVX [Suspect]
     Active Substance: SUZETRIGINE
     Indication: Pain
     Dosage: 1 TABLET (50MG SUZETRIGINE) IN THE MORNING THREE DAYS A WEEK
     Route: 061

REACTIONS (2)
  - Coordination abnormal [Not Recovered/Not Resolved]
  - Off label use [Unknown]
